FAERS Safety Report 8415564-0 (Version None)
Quarter: 2012Q2

REPORT INFORMATION
  Report Type: 
  Country: None (occurrence: None)
  Receive Date: 20120606
  Receipt Date: 20120529
  Transmission Date: 20120825
  Serious: Yes (Hospitalization, Other)
  Sender: FDA-Public Use
  Company Number: KR-UCBSA-046347

PATIENT
  Age: 69 Year
  Sex: Female
  Weight: 160.8 kg

DRUGS (18)
  1. METHOTREXATE [Concomitant]
     Dates: start: 20100224, end: 20111209
  2. MOBIC [Concomitant]
     Dosage: X 8 WEEKS
     Route: 048
  3. ULTRACET [Concomitant]
     Dosage: 37.5/325 MG, 1 TABLET TWICE A DAY ONCE IN 12 HOURS X 8 WEEKS
     Route: 048
  4. LEVOFLOXACIN [Concomitant]
     Dosage: 0.5 % 5 ML OPH SOL,4/D
  5. ATROPINE [Concomitant]
     Dosage: 1%, 15 ML OPH SOL, 2/D
  6. METHOTREXATE [Concomitant]
     Dates: start: 20090909, end: 20091229
  7. NORVASC [Concomitant]
     Dosage: X 90 DAYS
     Route: 048
  8. CIMZIA [Suspect]
     Route: 058
     Dates: start: 20110125, end: 20110101
  9. FOLIC ACID [Concomitant]
     Dosage: 1 MG 5/WEEK X 8 WEEKS
     Route: 048
  10. MUCOSTA [Concomitant]
     Dosage: X 8 WEEKS
     Route: 048
  11. ALBIS [Concomitant]
     Dosage: AT BED TIME X 8 WEEKS; 1TAB
     Route: 048
  12. REPAGLINIDE [Concomitant]
     Dosage: X28 DAYS
     Route: 048
  13. MYDRIN [Concomitant]
     Dosage: ONE DROP EVERY 5 MINUTES, 3 TIMES AT 7 AM, OPHTHALMIC SOLUTION.
  14. CIMZIA [Suspect]
     Route: 058
     Dates: start: 20100809, end: 20110101
  15. METHOTREXATE [Concomitant]
     Dates: start: 20091230, end: 20100223
  16. CIMZIA [Suspect]
     Indication: RHEUMATOID ARTHRITIS
     Route: 058
     Dates: start: 20110809, end: 20111031
  17. METHOTREXATE [Concomitant]
     Dates: start: 20090722, end: 20090908
  18. LIPILOW [Concomitant]
     Dosage: X 30 DAYS
     Route: 048

REACTIONS (2)
  - VITRECTOMY [None]
  - LYMPH NODE TUBERCULOSIS [None]
